FAERS Safety Report 6420191-0 (Version None)
Quarter: 2009Q4

REPORT INFORMATION
  Report Type: 
  Country: None (occurrence: None)
  Receive Date: 20091029
  Receipt Date: 20091023
  Transmission Date: 20100525
  Serious: Yes (Other)
  Sender: FDA-Public Use
  Company Number: US-AVENTIS-200919541US

PATIENT
  Sex: Male

DRUGS (3)
  1. LANTUS [Suspect]
     Indication: TYPE 2 DIABETES MELLITUS
     Dosage: DOSE: UNK
     Route: 058
  2. APIDRA [Suspect]
     Indication: TYPE 2 DIABETES MELLITUS
     Dosage: DOSE: 5 TO 12 UNIT SLIDING SCALE EACH MEAL
     Route: 051
     Dates: start: 20040101
  3. OPTICLIK GREY [Suspect]
     Indication: TYPE 2 DIABETES MELLITUS

REACTIONS (2)
  - LUNG NEOPLASM MALIGNANT [None]
  - MALAISE [None]
